FAERS Safety Report 17523832 (Version 3)
Quarter: 2020Q2

REPORT INFORMATION
  Report Type: Report from Study
  Country: US (occurrence: US)
  Receive Date: 20200310
  Receipt Date: 20200617
  Transmission Date: 20200713
  Serious: No
  Sender: FDA-Public Use
  Company Number: NVSC2020US068063

PATIENT
  Age: 52 Year
  Sex: Male

DRUGS (1)
  1. ENTRESTO [Suspect]
     Active Substance: SACUBITRIL\VALSARTAN
     Indication: CARDIAC FAILURE CONGESTIVE
     Dosage: UNK UNK, UNKNOWN
     Route: 065
     Dates: start: 202002

REACTIONS (3)
  - Weight decreased [Recovering/Resolving]
  - Heart rate abnormal [Unknown]
  - Sleep disorder [Recovering/Resolving]

NARRATIVE: CASE EVENT DATE: 202002
